FAERS Safety Report 8824093 (Version 1)
Quarter: 2012Q4

REPORT INFORMATION
  Report Type: 
  Country: US (occurrence: US)
  Receive Date: 20121003
  Receipt Date: 20121003
  Transmission Date: 20130627
  Serious: Yes (Other)
  Sender: FDA-Public Use
  Company Number: US-ROCHE-1133609

PATIENT
  Sex: Male

DRUGS (1)
  1. RITUXAN [Suspect]
     Indication: CHRONIC LYMPHOCYTIC LEUKAEMIA
     Route: 065
     Dates: start: 19990331

REACTIONS (8)
  - Thrombocytopenia [Unknown]
  - Hypersplenism [Unknown]
  - Anaemia [Unknown]
  - Fatigue [Unknown]
  - Cough [Unknown]
  - Chills [Unknown]
  - Myalgia [Unknown]
  - Influenza like illness [Unknown]
